FAERS Safety Report 8326470-4 (Version None)
Quarter: 2012Q2

REPORT INFORMATION
  Report Type: 
  Country: None (occurrence: None)
  Receive Date: 20120501
  Receipt Date: 20120427
  Transmission Date: 20120825
  Serious: Yes (Other)
  Sender: FDA-Public Use
  Company Number: DK-PFIZER INC-2012105569

PATIENT
  Age: 12 Year
  Sex: Female

DRUGS (1)
  1. ZOLOFT [Suspect]
     Dosage: UNK
     Dates: start: 20110101

REACTIONS (1)
  - GROWTH RETARDATION [None]
